FAERS Safety Report 17478565 (Version 1)
Quarter: 2020Q1

REPORT INFORMATION
  Report Type: Spontaneous
  Country: US (occurrence: US)
  Receive Date: 20200228
  Receipt Date: 20200228
  Transmission Date: 20200409
  Serious: No
  Sender: FDA-Public Use
  Company Number: US-BAYER-2020-034645

PATIENT
  Sex: Male

DRUGS (2)
  1. PSYLLIUM HYDROPHILIC MUCILLOID [Suspect]
     Active Substance: PSYLLIUM HUSK
     Dosage: UNK UNK, TID
     Dates: start: 2019
  2. MIRALAX [Suspect]
     Active Substance: POLYETHYLENE GLYCOL 3350
     Dosage: UNK UNK, TID
     Route: 048
     Dates: start: 2019, end: 202002

REACTIONS (4)
  - Swelling [Unknown]
  - Pruritus [Unknown]
  - Proctalgia [Unknown]
  - Urticaria [Unknown]
